FAERS Safety Report 7882416-4 (Version None)
Quarter: 2011Q4

REPORT INFORMATION
  Report Type: 
  Country: None (occurrence: None)
  Receive Date: 20111101
  Receipt Date: 20110614
  Transmission Date: 20120403
  Serious: No
  Sender: FDA-Public Use
  Company Number: US-AMGEN-USASP2011028347

PATIENT
  Age: 54 Year
  Sex: Female
  Weight: 58.05 kg

DRUGS (1)
  1. ENBREL [Suspect]
     Indication: RHEUMATOID ARTHRITIS
     Dates: start: 20110427

REACTIONS (6)
  - INJECTION SITE REACTION [None]
  - SWELLING [None]
  - INJECTION SITE SWELLING [None]
  - INJECTION SITE PAIN [None]
  - CONTUSION [None]
  - INJECTION SITE HAEMATOMA [None]
